FAERS Safety Report 4594538-4 (Version None)
Quarter: 2005Q1

REPORT INFORMATION
  Report Type: 
  Country: None (occurrence: None)
  Receive Date: 20050301
  Receipt Date: 20040430
  Transmission Date: 20050727
  Serious: Yes (Life-Threatening, Hospitalization, Disabling, Other)
  Sender: FDA-Public Use
  Company Number: US-GLAXOSMITHKLINE-A0509643A

PATIENT
  Age: 43 Year
  Sex: Female

DRUGS (7)
  1. VALTREX [Suspect]
     Indication: HERPES ZOSTER
     Dosage: 2G TWICE PER DAY
     Route: 048
  2. TRICOR [Concomitant]
     Dosage: 160MG PER DAY
     Route: 048
  3. DARVOCET [Concomitant]
     Indication: PAIN
     Dosage: 100MG AS REQUIRED
     Route: 048
     Dates: start: 20040304, end: 20040306
  4. CENESTIN [Concomitant]
     Indication: HORMONE REPLACEMENT THERAPY
     Dosage: 1.25MG PER DAY
     Route: 048
  5. NEURONTIN [Concomitant]
     Indication: NEUROPATHY
     Dosage: 1600MG THREE TIMES PER DAY
     Route: 048
  6. ZOLOFT [Concomitant]
     Indication: DEPRESSION
     Dosage: 50MG AT NIGHT
     Route: 050
  7. PREDNISONE [Concomitant]
     Route: 048
     Dates: start: 20040303, end: 20040316

REACTIONS (1)
  - ANGIONEUROTIC OEDEMA [None]
